FAERS Safety Report 4608555-9 (Version None)
Quarter: 2005Q1

REPORT INFORMATION
  Report Type: 
  Country: None (occurrence: None)
  Receive Date: 20050315
  Receipt Date: 20050303
  Transmission Date: 20050727
  Serious: Yes (Hospitalization)
  Sender: FDA-Public Use
  Company Number: DE-BRISTOL-MYERS SQUIBB COMPANY-12886438

PATIENT
  Age: 73 Year
  Sex: Male
  Weight: 77 kg

DRUGS (7)
  1. CARBOPLATIN [Suspect]
     Indication: LUNG NEOPLASM MALIGNANT
     Dosage: AUC 5 DOSING ON DAY 1
     Route: 042
     Dates: start: 20030812, end: 20030812
  2. IRINOTECAN HCL [Suspect]
     Indication: LUNG NEOPLASM MALIGNANT
     Dosage: DOSING ON DAYS 1,8,15
     Route: 042
     Dates: start: 20030819, end: 20030819
  3. ISOKET RETARD [Concomitant]
     Indication: CARDIAC DISORDER
     Route: 048
     Dates: start: 20030807
  4. THEOPHYLLINE [Concomitant]
     Indication: CHRONIC OBSTRUCTIVE PULMONARY DISEASE
     Route: 048
     Dates: start: 20030807
  5. NEXIUM [Concomitant]
     Indication: STOMACH DISCOMFORT
     Route: 048
     Dates: start: 20030807
  6. SYMBICORT [Concomitant]
     Indication: CHRONIC OBSTRUCTIVE PULMONARY DISEASE
     Route: 055
     Dates: start: 20030807
  7. OMNIC [Concomitant]
     Indication: BENIGN PROSTATIC HYPERPLASIA
     Route: 048
     Dates: start: 20030807

REACTIONS (7)
  - ABDOMINAL PAIN [None]
  - BILIRUBIN CONJUGATED INCREASED [None]
  - BLOOD BILIRUBIN UNCONJUGATED INCREASED [None]
  - DIARRHOEA [None]
  - JAUNDICE [None]
  - PYREXIA [None]
  - SUBILEUS [None]
